FAERS Safety Report 22649095 (Version 12)
Quarter: 2023Q4

REPORT INFORMATION
  Report Type: Report from Study
  Country: RU (occurrence: RU)
  Receive Date: 20230628
  Receipt Date: 20231214
  Transmission Date: 20240110
  Serious: Yes (Other)
  Sender: FDA-Public Use
  Company Number: RU-002147023-NVSC2023RU132198

PATIENT
  Age: 1 Year
  Sex: Female
  Weight: 7.2 kg

DRUGS (2)
  1. ZOLGENSMA [Suspect]
     Active Substance: ONASEMNOGENE ABEPARVOVEC-XIOI
     Indication: Spinal muscular atrophy
     Dosage: 41.3 ML, ONCE/SINGLE
     Route: 041
     Dates: start: 20230421, end: 20230421
  2. PREDNISOLONE [Concomitant]
     Active Substance: PREDNISOLONE
     Indication: Product used for unknown indication
     Dosage: 7.5 MG, QD
     Route: 065

REACTIONS (7)
  - International normalised ratio decreased [Unknown]
  - Blood creatinine decreased [Unknown]
  - Blood bilirubin decreased [Unknown]
  - Activated partial thromboplastin time shortened [Unknown]
  - Blood alkaline phosphatase decreased [Unknown]
  - Aspartate aminotransferase increased [Unknown]
  - Alanine aminotransferase increased [Unknown]

NARRATIVE: CASE EVENT DATE: 20230421
